FAERS Safety Report 5483122-6 (Version None)
Quarter: 2007Q4

REPORT INFORMATION
  Report Type: 
  Country: None (occurrence: None)
  Receive Date: 20071011
  Receipt Date: 20071002
  Transmission Date: 20080405
  Serious: Yes (Life-Threatening)
  Sender: FDA-Public Use
  Company Number: IT-ABBOTT-07P-083-0419273-00

PATIENT
  Sex: Female

DRUGS (6)
  1. DEPAKIN CHRONO TABLETS [Suspect]
     Indication: BIPOLAR I DISORDER
     Route: 048
     Dates: start: 20070523, end: 20070903
  2. RISPERIDONE [Suspect]
     Indication: BIPOLAR I DISORDER
     Route: 048
     Dates: start: 20070523, end: 20070911
  3. ALENDRONATE SODIUM [Concomitant]
     Indication: OSTEOPOROSIS
     Route: 048
     Dates: start: 20060101
  4. CALCIUM D3 [Concomitant]
     Indication: OSTEOPOROSIS
     Route: 048
     Dates: start: 20060101
  5. OMEPRAZOLE [Concomitant]
     Indication: HIATUS HERNIA
     Route: 048
     Dates: start: 20050101
  6. LEVOTHYROXINE SODIUM [Concomitant]
     Indication: HYPOTHYROIDISM
     Route: 048
     Dates: start: 20030101

REACTIONS (11)
  - AMAUROSIS [None]
  - BONE MARROW FAILURE [None]
  - CONJUNCTIVAL HAEMORRHAGE [None]
  - ECCHYMOSIS [None]
  - GINGIVAL BLEEDING [None]
  - HAEMATOMA [None]
  - HYPERPYREXIA [None]
  - PANCYTOPENIA [None]
  - RETINAL HAEMORRHAGE [None]
  - SUBARACHNOID HAEMORRHAGE [None]
  - VITREOUS DISORDER [None]
